FAERS Safety Report 21424976 (Version 3)
Quarter: 2022Q4

REPORT INFORMATION
  Report Type: Report from Study
  Country: AU (occurrence: AU)
  Receive Date: 20221008
  Receipt Date: 20221031
  Transmission Date: 20230113
  Serious: Yes (Other)
  Sender: FDA-Public Use
  Company Number: AU-JNJFOC-20220800383

PATIENT
  Sex: Female

DRUGS (10)
  1. IMBRUVICA [Suspect]
     Active Substance: IBRUTINIB
     Indication: Chronic lymphocytic leukaemia
     Route: 048
     Dates: start: 20220424
  2. ASPIRIN [Concomitant]
     Active Substance: ASPIRIN
     Indication: Coronary arterial stent insertion
     Route: 048
  3. VITAMIN E [Concomitant]
     Active Substance: .ALPHA.-TOCOPHEROL
     Indication: Product used for unknown indication
  4. VITAMIN E [Concomitant]
     Active Substance: .ALPHA.-TOCOPHEROL
     Indication: Product used for unknown indication
     Route: 048
  5. VITAMIN D3 [Concomitant]
     Active Substance: CHOLECALCIFEROL
     Indication: Product used for unknown indication
     Route: 048
  6. GLUCOSAMINE [Concomitant]
     Active Substance: GLUCOSAMINE
     Indication: Product used for unknown indication
     Route: 048
  7. METFORMIN [Concomitant]
     Active Substance: METFORMIN HYDROCHLORIDE
     Indication: Product used for unknown indication
  8. COENZYME Q10 [Concomitant]
     Active Substance: DIETARY SUPPLEMENT\UBIDECARENONE
     Indication: Product used for unknown indication
     Route: 048
  9. CRESTOR [Concomitant]
     Active Substance: ROSUVASTATIN CALCIUM
     Indication: Product used for unknown indication
  10. BISOPROLOL [Concomitant]
     Active Substance: BISOPROLOL
     Indication: Product used for unknown indication

REACTIONS (7)
  - Skin cancer [Not Recovered/Not Resolved]
  - Multiple allergies [Not Recovered/Not Resolved]
  - Nasal discomfort [Not Recovered/Not Resolved]
  - Eye irritation [Not Recovered/Not Resolved]
  - Off label use [Unknown]
  - Rash [Recovered/Resolved]
  - Skin discolouration [Recovered/Resolved]

NARRATIVE: CASE EVENT DATE: 20220101
